FAERS Safety Report 7794383-2 (Version None)
Quarter: 2011Q4

REPORT INFORMATION
  Report Type: 
  Country: None (occurrence: None)
  Receive Date: 20111004
  Receipt Date: 20110923
  Transmission Date: 20120403
  Serious: Yes (Other)
  Sender: FDA-Public Use
  Company Number: DE-BAYER-2011-082232

PATIENT
  Age: 46 Year
  Sex: Female
  Weight: 57 kg

DRUGS (2)
  1. MIRENA [Suspect]
     Dosage: UNK
     Route: 015
     Dates: start: 20081021
  2. MIRENA [Suspect]
     Dosage: UNK
     Route: 015
     Dates: start: 20030901, end: 20081001

REACTIONS (2)
  - HEPATIC ADENOMA [None]
  - RED BLOOD CELL SEDIMENTATION RATE INCREASED [None]
